FAERS Safety Report 23318059 (Version 3)
Quarter: 2024Q2

REPORT INFORMATION
  Report Type: Report from Study
  Country: US (occurrence: US)
  Receive Date: 20231219
  Receipt Date: 20240420
  Transmission Date: 20240716
  Serious: Yes (Other)
  Sender: FDA-Public Use
  Company Number: US-ABBVIE-5454205

PATIENT
  Age: 60 Year
  Sex: Male
  Weight: 77 kg

DRUGS (3)
  1. HUMIRA [Suspect]
     Active Substance: ADALIMUMAB
     Indication: Crohn^s disease
     Dosage: FORM STRENGTH: 40 MG/CITRATE FREE CF
     Route: 058
     Dates: start: 202201
  2. HUMIRA [Suspect]
     Active Substance: ADALIMUMAB
     Dosage: FORM STRENGTH: 40 MILLIGRAM
     Route: 058
  3. HUMIRA [Suspect]
     Active Substance: ADALIMUMAB
     Dosage: FORM STRENGTH: 40 MG
     Route: 058

REACTIONS (9)
  - Pharyngeal ulceration [Recovering/Resolving]
  - Constipation [Unknown]
  - Unevaluable event [Recovered/Resolved]
  - Throat irritation [Recovered/Resolved]
  - Productive cough [Unknown]
  - Oropharyngeal pain [Unknown]
  - Stress [Unknown]
  - Arthralgia [Unknown]
  - Polyp [Unknown]

NARRATIVE: CASE EVENT DATE: 20230501
